FAERS Safety Report 4327928-5 (Version None)
Quarter: 2004Q1

REPORT INFORMATION
  Report Type: 
  Country: None (occurrence: None)
  Receive Date: 20040325
  Receipt Date: 20040311
  Transmission Date: 20041129
  Serious: Yes (Other)
  Sender: FDA-Public Use
  Company Number: 2004017487

PATIENT
  Sex: Female
  Weight: 97.5234 kg

DRUGS (8)
  1. ZOLOFT [Suspect]
     Indication: DEPRESSION
  2. TIZANIDINE HCL [Suspect]
     Indication: PAIN
  3. ACETYLSALICYLIC ACID SRT [Concomitant]
  4. OTHER RESPIRATORY SYSTEM PRODUCTS [Concomitant]
  5. ALL OTHER THERAPEUTIC PRODUCTS [Concomitant]
  6. OMEPRAZOLE [Concomitant]
  7. AMLODIPINE BESYLATE [Concomitant]
  8. DIGOXIN [Concomitant]

REACTIONS (7)
  - DRUG WITHDRAWAL SYNDROME [None]
  - DYSPNOEA [None]
  - FATIGUE [None]
  - MYOCLONIC EPILEPSY [None]
  - NERVE INJURY [None]
  - PAIN [None]
  - SOMNOLENCE [None]
